FAERS Safety Report 12220248 (Version 1)
Quarter: 2016Q1

REPORT INFORMATION
  Report Type: Report from Study
  Country: FR (occurrence: FR)
  Receive Date: 20160330
  Receipt Date: 20160330
  Transmission Date: 20160526
  Serious: Yes (Hospitalization, Other)
  Sender: FDA-Public Use
  Company Number: PHHY2014FR088434

PATIENT
  Age: 69 Year
  Sex: Male
  Weight: 80 kg

DRUGS (6)
  1. SOLUPRED [Suspect]
     Active Substance: PREDNISOLONE
     Indication: PRODUCT USED FOR UNKNOWN INDICATION
     Route: 065
     Dates: start: 20120416
  2. CARDENSIEL [Concomitant]
     Active Substance: BISOPROLOL FUMARATE
     Indication: CARDIAC FAILURE
     Dosage: 25 MG, QD
     Route: 065
     Dates: start: 20120606
  3. CELLCEPT [Suspect]
     Active Substance: MYCOPHENOLATE MOFETIL\MYCOPHENOLATE MOFETIL HYDROCHLORIDE
     Indication: PRODUCT USED FOR UNKNOWN INDICATION
     Route: 065
     Dates: start: 20111129
  4. KARDEGIC [Concomitant]
     Active Substance: ASPIRIN LYSINE
     Indication: PRODUCT USED FOR UNKNOWN INDICATION
     Dosage: 75 MG, QD
     Route: 065
     Dates: start: 20120329
  5. CERTICAN [Suspect]
     Active Substance: EVEROLIMUS
     Indication: RENAL TRANSPLANT
     Dosage: 3 MG, UNK
     Route: 048
     Dates: start: 20120110, end: 20140114
  6. XANAX [Concomitant]
     Active Substance: ALPRAZOLAM
     Indication: ANXIETY
     Dosage: 0.25 MG, QD
     Route: 065
     Dates: start: 20120907

REACTIONS (22)
  - Transitional cell carcinoma [Recovered/Resolved]
  - Pyelonephritis acute [Recovered/Resolved]
  - Ureteral disorder [Recovered/Resolved]
  - Renal transplant failure [Recovered/Resolved]
  - Pyelonephritis [Recovered/Resolved]
  - Pyrexia [Recovered/Resolved]
  - Acute kidney injury [Recovered/Resolved]
  - Syncope [Recovered/Resolved]
  - Pneumonia [Recovered/Resolved]
  - Transient ischaemic attack [Recovered/Resolved]
  - Dehydration [Not Recovered/Not Resolved]
  - Rectal haemorrhage [Recovered/Resolved]
  - Submandibular mass [Recovered/Resolved]
  - Aphasia [Recovered/Resolved]
  - Hypotension [Recovered/Resolved]
  - Urinary tract infection [Recovered/Resolved]
  - Urinary bladder polyp [Recovered/Resolved]
  - Postrenal failure [Recovered/Resolved]
  - Acute kidney injury [Not Recovered/Not Resolved]
  - Malaise [Recovered/Resolved]
  - Abscess [Recovered/Resolved]
  - Dermoid cyst [Recovered/Resolved]

NARRATIVE: CASE EVENT DATE: 20130503
